FAERS Safety Report 5642179-X (Version None)
Quarter: 2008Q1

REPORT INFORMATION
  Report Type: 
  Country: None (occurrence: None)
  Receive Date: 20080225
  Receipt Date: 20080212
  Transmission Date: 20080703
  Serious: Yes (Disabling, Other)
  Sender: FDA-Public Use
  Company Number: US021396

PATIENT
  Age: 56 Year
  Sex: Female
  Weight: 81.6475 kg

DRUGS (10)
  1. PROVIGIL [Suspect]
     Indication: SLEEP APNOEA SYNDROME
     Dosage: 50 MG QD ORAL,00 MG, QD,ORAL
     Route: 048
     Dates: start: 20060101, end: 20060901
  2. PROVIGIL [Suspect]
     Indication: SLEEP APNOEA SYNDROME
     Dosage: 50 MG QD ORAL,00 MG, QD,ORAL
     Route: 048
     Dates: start: 20060901, end: 20070929
  3. LYRICA [Concomitant]
  4. NEFAZODONE HCL [Concomitant]
  5. CRESTER /01588601/ [Concomitant]
  6. EVISTA [Concomitant]
  7. METOCLOPRAMIDE [Concomitant]
  8. LISINOPRIL [Concomitant]
  9. NEXIUM [Concomitant]
  10. ACYCLOVIR [Concomitant]

REACTIONS (11)
  - ANGIOEDEMA [None]
  - DYSPHAGIA [None]
  - DYSTONIA [None]
  - IMPAIRED DRIVING ABILITY [None]
  - OEDEMA MOUTH [None]
  - ORAL DISCOMFORT [None]
  - ORAL PAIN [None]
  - OROPHARYNGEAL BLISTERING [None]
  - SPEECH DISORDER [None]
  - THROAT TIGHTNESS [None]
  - TONGUE OEDEMA [None]
